FAERS Safety Report 9680549 (Version 1)
Quarter: 2013Q4

REPORT INFORMATION
  Report Type: Spontaneous
  Country: US (occurrence: US)
  Receive Date: 20131111
  Receipt Date: 20131111
  Transmission Date: 20140711
  Serious: No
  Sender: FDA-Public Use
  Company Number: US-PFIZER INC-2013320843

PATIENT
  Age: 65 Year
  Sex: Female

DRUGS (2)
  1. CHANTIX [Suspect]
     Indication: SMOKING CESSATION THERAPY
     Dosage: 0.5 MG, DAILY
     Dates: end: 2013
  2. CHANTIX [Suspect]
     Dosage: UNK
     Dates: start: 2013, end: 2013

REACTIONS (3)
  - Abnormal dreams [Unknown]
  - Irritability [Unknown]
  - Insomnia [Recovered/Resolved]
